FAERS Safety Report 9219214 (Version 1)
Quarter: 2013Q2

REPORT INFORMATION
  Report Type: Spontaneous
  Country: BE (occurrence: BE)
  Receive Date: 20130409
  Receipt Date: 20130409
  Transmission Date: 20140414
  Serious: Yes (Hospitalization)
  Sender: FDA-Public Use
  Company Number: BE-JNJFOC-20130401443

PATIENT
  Age: 84 Year
  Sex: Female

DRUGS (6)
  1. XARELTO [Suspect]
     Indication: ATRIAL FIBRILLATION
     Route: 048
     Dates: start: 20121029
  2. XARELTO [Suspect]
     Indication: CEREBROVASCULAR ACCIDENT PROPHYLAXIS
     Route: 048
     Dates: start: 20121029
  3. EMCONCOR [Concomitant]
     Route: 065
  4. DAFALGAN [Concomitant]
     Route: 065
  5. LASIX [Concomitant]
     Route: 065
  6. HEPARIN SODIUM [Concomitant]
     Route: 065

REACTIONS (2)
  - Hiatus hernia [Unknown]
  - General physical health deterioration [Unknown]
